FAERS Safety Report 7514055-9 (Version None)
Quarter: 2011Q2

REPORT INFORMATION
  Report Type: 
  Country: None (occurrence: None)
  Receive Date: 20110531
  Receipt Date: 20110517
  Transmission Date: 20111010
  Serious: Yes (Other)
  Sender: FDA-Public Use
  Company Number: CH-CELGENEUS-151-21880-11052212

PATIENT
  Age: 50 Year
  Sex: Male

DRUGS (9)
  1. REVLIMID [Suspect]
     Indication: MULTIPLE MYELOMA
     Dosage: 25 MILLIGRAM
     Route: 048
     Dates: start: 20080801
  2. TRIMETHOPRIM [Concomitant]
     Route: 065
  3. URSODIOL [Concomitant]
     Route: 065
  4. ESOMEPRAZOLE MAGNESIUM [Concomitant]
     Route: 065
  5. ASPIRIN [Concomitant]
     Route: 065
  6. SULFAMETHOXAZOLE [Concomitant]
     Dosage: 400 MILLIGRAM
     Route: 065
  7. REVLIMID [Suspect]
     Dosage: 10 MILLIGRAM
     Route: 048
     Dates: start: 20100719, end: 20100729
  8. PENICILLIN [Concomitant]
     Dosage: 1MIU
     Route: 065
  9. VALACYCLOVIR [Concomitant]
     Route: 065

REACTIONS (3)
  - RASH [None]
  - ANGIOEDEMA [None]
  - HEPATITIS [None]
